FAERS Safety Report 5174305-3 (Version None)
Quarter: 2006Q4

REPORT INFORMATION
  Report Type: 
  Country: None (occurrence: None)
  Receive Date: 20061214
  Receipt Date: 20060307
  Transmission Date: 20070319
  Serious: Yes (Hospitalization)
  Sender: FDA-Public Use
  Company Number: US-ELI_LILLY_AND_COMPANY-US200606000303

PATIENT
  Age: 63 Year
  Sex: Female
  Weight: 108.84 kg

DRUGS (1)
  1. ZYPREXA [Suspect]
     Dates: start: 19970101

REACTIONS (4)
  - DIABETES MELLITUS [None]
  - GLYCOSURIA [None]
  - MYOCARDIAL INFARCTION [None]
  - OBESITY [None]
